FAERS Safety Report 7791912-X (Version None)
Quarter: 2011Q3

REPORT INFORMATION
  Report Type: 
  Country: None (occurrence: None)
  Receive Date: 20110930
  Receipt Date: 20110922
  Transmission Date: 20111222
  Serious: Yes (Life-Threatening, Hospitalization)
  Sender: FDA-Public Use
  Company Number: 2011ST000321

PATIENT
  Age: 11 Year
  Sex: Female
  Weight: 48.6 kg

DRUGS (1)
  1. ONCASPAR [Suspect]
     Indication: ACUTE LYMPHOCYTIC LEUKAEMIA
     Dosage: 3550 IU;X1;IV
     Route: 042
     Dates: start: 20110920, end: 20110920

REACTIONS (8)
  - ORAL DISCOMFORT [None]
  - PRURITUS [None]
  - TACHYCARDIA [None]
  - DIARRHOEA [None]
  - DYSPNOEA [None]
  - FEELING HOT [None]
  - RASH [None]
  - INFUSION RELATED REACTION [None]
